FAERS Safety Report 8044713-1 (Version None)
Quarter: 2012Q1

REPORT INFORMATION
  Report Type: 
  Country: None (occurrence: None)
  Receive Date: 20120113
  Receipt Date: 20120109
  Transmission Date: 20120608
  Serious: Yes (Other)
  Sender: FDA-Public Use
  Company Number: US-PFIZER INC-2012007261

PATIENT
  Age: 17 Year
  Sex: Female
  Weight: 137 kg

DRUGS (1)
  1. LYRICA [Suspect]
     Dosage: 150 MG, (20-50 CAPSULES)

REACTIONS (6)
  - OVERDOSE [None]
  - GRAND MAL CONVULSION [None]
  - DRUG SCREEN POSITIVE [None]
  - ANXIETY [None]
  - SUICIDE ATTEMPT [None]
  - MEMORY IMPAIRMENT [None]
